FAERS Safety Report 20980366 (Version 1)
Quarter: 2022Q2

REPORT INFORMATION
  Report Type: Spontaneous
  Country: US (occurrence: US)
  Receive Date: 20220620
  Receipt Date: 20220620
  Transmission Date: 20220721
  Serious: No
  Sender: FDA-Public Use
  Company Number: US-AUROBINDO-AUR-APL-2022-011858

PATIENT
  Age: 75 Year
  Sex: Female
  Weight: 59.864 kg

DRUGS (1)
  1. CIPROFLOXACIN [Suspect]
     Active Substance: CIPROFLOXACIN
     Indication: Urinary tract infection
     Dosage: UNK, TWO TIMES A DAY
     Route: 065
     Dates: start: 20220330, end: 20220401

REACTIONS (3)
  - Hypoaesthesia [Unknown]
  - Joint swelling [Unknown]
  - Dizziness [Unknown]
